FAERS Safety Report 6623543-9 (Version None)
Quarter: 2010Q1

REPORT INFORMATION
  Report Type: 
  Country: None (occurrence: None)
  Receive Date: 20100310
  Receipt Date: 20100225
  Transmission Date: 20100710
  Serious: Yes (Other)
  Sender: FDA-Public Use
  Company Number: US-ASTRAZENECA-2010SE08519

PATIENT
  Age: 47 Year
  Sex: Male

DRUGS (2)
  1. SEROQUEL XR [Suspect]
     Route: 048
     Dates: start: 20091201
  2. DEPAKOTE ER [Concomitant]
     Route: 048

REACTIONS (3)
  - BLOOD POTASSIUM [None]
  - MONOCYTE COUNT [None]
  - WHITE BLOOD CELL COUNT [None]
